FAERS Safety Report 6106589-9 (Version None)
Quarter: 2009Q1

REPORT INFORMATION
  Report Type: 
  Country: None (occurrence: None)
  Receive Date: 20090306
  Receipt Date: 20090227
  Transmission Date: 20090719
  Serious: Yes (Other)
  Sender: FDA-Public Use
  Company Number: GR-GENENTECH-278458

PATIENT
  Age: 60 Year
  Sex: Female

DRUGS (3)
  1. AVASTIN [Suspect]
     Indication: LARYNGEAL CANCER
     Dosage: 10 MG/KG, Q2W
     Dates: start: 20071101
  2. AVASTIN [Suspect]
     Dosage: 7.5 MG/KG, UNK
  3. CETUXIMAB [Concomitant]
     Indication: LARYNGEAL CANCER
     Dosage: 200 MG/M2, 1/WEEK
     Dates: start: 20071101

REACTIONS (1)
  - ECCHYMOSIS [None]
